FAERS Safety Report 18755929 (Version 1)
Quarter: 2021Q1

REPORT INFORMATION
  Report Type: Spontaneous
  Country: US (occurrence: US)
  Receive Date: 20210116
  Receipt Date: 20210116
  Transmission Date: 20210419
  Serious: No
  Sender: FDA-Public Use
  Company Number: None

PATIENT
  Age: 65 Year
  Sex: Female
  Weight: 58.5 kg

DRUGS (18)
  1. ACTCLOVIR [Concomitant]
  2. ADVAIR HFA [Concomitant]
     Active Substance: FLUTICASONE PROPIONATE\SALMETEROL XINAFOATE
  3. METHYLPREDNISOLONE. [Suspect]
     Active Substance: METHYLPREDNISOLONE
     Indication: ASTHMA
     Dosage: ?          QUANTITY:21 TABLET(S);OTHER FREQUENCY:DECREASING DOSAGE;?
     Route: 048
     Dates: start: 20210111, end: 20210115
  4. AMLODIPINE BESYLATE. [Concomitant]
     Active Substance: AMLODIPINE BESYLATE
  5. LINZESS [Concomitant]
     Active Substance: LINACLOTIDE
  6. METFORMIN [Concomitant]
     Active Substance: METFORMIN HYDROCHLORIDE
  7. MONTELUKAST [Concomitant]
     Active Substance: MONTELUKAST SODIUM
  8. BABY ASPIRIN [Concomitant]
     Active Substance: ASPIRIN
  9. PANTOPRAZOLE [Concomitant]
     Active Substance: PANTOPRAZOLE
  10. LEVOTHYROXINE. [Concomitant]
     Active Substance: LEVOTHYROXINE
  11. PRAVASTATIN. [Concomitant]
     Active Substance: PRAVASTATIN
  12. THEOPHYLLINE USE NEBULIZER [Concomitant]
  13. VITAMIN D3 [Concomitant]
     Active Substance: CHOLECALCIFEROL
  14. METHYLPREDNISOLONE. [Suspect]
     Active Substance: METHYLPREDNISOLONE
     Indication: CHRONIC OBSTRUCTIVE PULMONARY DISEASE
     Dosage: ?          QUANTITY:21 TABLET(S);OTHER FREQUENCY:DECREASING DOSAGE;?
     Route: 048
     Dates: start: 20210111, end: 20210115
  15. PROAIR HFA [Concomitant]
     Active Substance: ALBUTEROL SULFATE
  16. SPIRONOLACTONE. [Concomitant]
     Active Substance: SPIRONOLACTONE
  17. SPIRIVA [Concomitant]
     Active Substance: TIOTROPIUM BROMIDE MONOHYDRATE
  18. CPAP [Concomitant]
     Active Substance: DEVICE

REACTIONS (5)
  - Oxygen saturation decreased [None]
  - Drug ineffective [None]
  - Dyspnoea [None]
  - Product taste abnormal [None]
  - Product substitution issue [None]

NARRATIVE: CASE EVENT DATE: 20210114
